FAERS Safety Report 6358432-0 (Version None)
Quarter: 2009Q3

REPORT INFORMATION
  Report Type: 
  Country: None (occurrence: None)
  Receive Date: 20090911
  Receipt Date: 20090903
  Transmission Date: 20100115
  Serious: Yes (Other)
  Sender: FDA-Public Use
  Company Number: 2009JP005163

PATIENT
  Age: 37 Year
  Sex: Female
  Weight: 53.7 kg

DRUGS (16)
  1. TACROLIMUS [Suspect]
     Indication: LUPUS NEPHRITIS
     Dosage: 3 MG, /D, ORAL
     Route: 048
     Dates: start: 20080229
  2. PREDNISOLONE [Suspect]
     Indication: LUPUS NEPHRITIS
     Dosage: SEE IMAGE
     Route: 048
     Dates: start: 20080229, end: 20080318
  3. PREDNISOLONE [Suspect]
     Indication: LUPUS NEPHRITIS
     Dosage: SEE IMAGE
     Route: 048
     Dates: start: 20080319, end: 20080403
  4. PREDNISOLONE [Suspect]
     Indication: LUPUS NEPHRITIS
     Dosage: SEE IMAGE
     Route: 048
     Dates: start: 20080404, end: 20080501
  5. PREDNISOLONE [Suspect]
     Indication: LUPUS NEPHRITIS
     Dosage: SEE IMAGE
     Route: 048
     Dates: start: 20080502, end: 20080605
  6. PREDNISOLONE [Suspect]
     Indication: LUPUS NEPHRITIS
     Dosage: SEE IMAGE
     Route: 048
     Dates: start: 20080606, end: 20080828
  7. PREDNISOLONE [Suspect]
     Indication: LUPUS NEPHRITIS
     Dosage: SEE IMAGE
     Route: 048
     Dates: start: 20080829, end: 20081127
  8. PREDNISOLONE [Suspect]
     Indication: LUPUS NEPHRITIS
     Dosage: SEE IMAGE
     Route: 048
     Dates: start: 20081128, end: 20090226
  9. PREDNISOLONE [Suspect]
     Indication: LUPUS NEPHRITIS
     Dosage: SEE IMAGE
     Route: 048
     Dates: start: 20090227
  10. DIOVAN [Concomitant]
  11. ALFAROL (ALFACALCIDOL) [Concomitant]
  12. FAMOTIDINE [Concomitant]
  13. CRESTOR [Concomitant]
  14. LOSARTAN POTASSIUM [Concomitant]
  15. PROCYLIN (BERAPROST SODIUM) [Concomitant]
  16. FERO-GRADUMET (FERROUS SULFATE) [Concomitant]

REACTIONS (3)
  - IRON DEFICIENCY ANAEMIA [None]
  - OVARIAN GERM CELL TERATOMA BENIGN [None]
  - PLATELET COUNT INCREASED [None]
